FAERS Safety Report 9999032 (Version 1)
Quarter: 2014Q1

REPORT INFORMATION
  Report Type: Spontaneous
  Country: US (occurrence: None)
  Receive Date: 20140310
  Receipt Date: 20140310
  Transmission Date: 20141002
  Serious: Yes (Hospitalization)
  Sender: FDA-Public Use
  Company Number: FK201400752

PATIENT
  Age: 76 Year
  Sex: Male

DRUGS (1)
  1. DOXORUBICIN [Suspect]
     Indication: HEPATOCELLULAR CARCINOMA

REACTIONS (4)
  - Pulmonary infarction [None]
  - Klebsiella infection [None]
  - Vasospasm [None]
  - Toxicity to various agents [None]
